FAERS Safety Report 5154451-0 (Version None)
Quarter: 2006Q4

REPORT INFORMATION
  Report Type: 
  Country: None (occurrence: None)
  Receive Date: 20061114
  Receipt Date: 20061103
  Transmission Date: 20070319
  Serious: Yes (Hospitalization, Other)
  Sender: FDA-Public Use
  Company Number: 2006132350

PATIENT
  Age: 63 Year
  Sex: Male
  Weight: 60 kg

DRUGS (6)
  1. ATORVASTATIN CALCIUM [Suspect]
     Indication: CORONARY ARTERY DISEASE
     Dosage: 40 MG (40 MG, 1 IN 1 D), ORAL
     Route: 048
     Dates: start: 20060923, end: 20061012
  2. PLAVIX [Concomitant]
  3. BISOPROLOL FUMARATE [Concomitant]
  4. PRESTARIUM (PERINDOPRIL) [Concomitant]
  5. ASPIRIN [Concomitant]
  6. DIAPREL (GLICLAZIDE) [Concomitant]

REACTIONS (3)
  - BLOOD IMMUNOGLOBULIN E INCREASED [None]
  - CARBOHYDRATE ANTIGEN 15-3 INCREASED [None]
  - HEPATITIS [None]
